FAERS Safety Report 12058990 (Version 2)
Quarter: 2016Q1

REPORT INFORMATION
  Report Type: Spontaneous
  Country: US (occurrence: US)
  Receive Date: 20160210
  Receipt Date: 20160211
  Transmission Date: 20160526
  Serious: Yes (Other)
  Sender: FDA-Public Use
  Company Number: US-BEH-2015056327

PATIENT
  Age: 10 Year
  Sex: Female

DRUGS (2)
  1. CORTICOSTEROIDS [Suspect]
     Active Substance: CORTICOSTEROID NOS
     Indication: BRONCHIECTASIS
     Dosage: SYSTEMIC
  2. IVIG [Suspect]
     Active Substance: HUMAN IMMUNOGLOBULIN G
     Indication: BRONCHIECTASIS
     Route: 042

REACTIONS (2)
  - Drug ineffective for unapproved indication [Unknown]
  - Bronchiectasis [Unknown]
